FAERS Safety Report 24755136 (Version 2)
Quarter: 2024Q4

REPORT INFORMATION
  Report Type: Spontaneous
  Country: SE (occurrence: SE)
  Receive Date: 20241219
  Receipt Date: 20241227
  Transmission Date: 20250115
  Serious: Yes (Other)
  Sender: MYLAN
  Company Number: SE-ORIFARM-032420

PATIENT
  Age: 45 Year
  Sex: Female

DRUGS (2)
  1. SERTRALINE [Suspect]
     Active Substance: SERTRALINE HYDROCHLORIDE
     Indication: Depression
     Dosage: SERTRALINE TREATMENT BEFORE SYMPTOM ONSET FOR 9 YEARS
     Route: 065
  2. SERTRALINE [Suspect]
     Active Substance: SERTRALINE HYDROCHLORIDE
     Dosage: 100 MILLIGRAM, QD (100 MG X 1 (AT THE TIME OF BIOPSY))
     Route: 065

REACTIONS (2)
  - Mitochondrial myopathy acquired [Unknown]
  - Muscular weakness [Unknown]
